FAERS Safety Report 18048209 (Version 1)
Quarter: 2020Q3

REPORT INFORMATION
  Report Type: Spontaneous
  Country: US (occurrence: US)
  Receive Date: 20200720
  Receipt Date: 20200720
  Transmission Date: 20201103
  Serious: Yes (Hospitalization)
  Sender: FDA-Public Use
  Company Number: None

PATIENT
  Age: 66 Year
  Sex: Female

DRUGS (2)
  1. GENTAMICIN DRIP [Suspect]
     Active Substance: GENTAMICIN
     Indication: KIDNEY INFECTION
     Dates: start: 20180401, end: 20180408
  2. MULTIVITAMINS [Concomitant]
     Active Substance: VITAMINS

REACTIONS (19)
  - Diplopia [None]
  - Fatigue [None]
  - Dark circles under eyes [None]
  - Myalgia [None]
  - Depression [None]
  - Insomnia [None]
  - Tinnitus [None]
  - Bone pain [None]
  - Eye swelling [None]
  - Weight decreased [None]
  - Somnolence [None]
  - Alopecia [None]
  - Halo vision [None]
  - Paraesthesia [None]
  - Cystitis [None]
  - Asthenia [None]
  - Cataract [None]
  - Vision blurred [None]
  - Hypoaesthesia [None]

NARRATIVE: CASE EVENT DATE: 20180401
